FAERS Safety Report 23744291 (Version 1)
Quarter: 2024Q2

REPORT INFORMATION
  Report Type: Spontaneous
  Country: CH (occurrence: CH)
  Receive Date: 20240415
  Receipt Date: 20240415
  Transmission Date: 20240715
  Serious: Yes (Hospitalization)
  Sender: FDA-Public Use
  Company Number: None

PATIENT
  Age: 65 Year
  Sex: Female
  Weight: 85.5 kg

DRUGS (39)
  1. SOLU-MEDROL [Suspect]
     Active Substance: METHYLPREDNISOLONE SODIUM SUCCINATE
     Dosage: 125 MG
     Dates: start: 20240126
  2. CYTARABINE [Suspect]
     Active Substance: CYTARABINE
     Indication: Central nervous system lymphoma
     Dosage: 3743 MG, 1ST CYCLE
     Dates: start: 20240128, end: 20240129
  3. CYTARABINE [Suspect]
     Active Substance: CYTARABINE
     Dosage: 1 DF, 2ND CYCLE
     Route: 041
     Dates: start: 20240223, end: 20240224
  4. CYTARABINE [Suspect]
     Active Substance: CYTARABINE
     Dosage: 1 DF, 3RD CYCLE
     Route: 041
     Dates: start: 20240315, end: 20240316
  5. CYTARABINE [Suspect]
     Active Substance: CYTARABINE
     Dosage: 1 DF, 4TH CYCLE
     Route: 041
     Dates: start: 20240404, end: 20240405
  6. METHOTREXATE SODIUM [Suspect]
     Active Substance: METHOTREXATE SODIUM
     Indication: Central nervous system lymphoma
     Dosage: 1 DF, 1ND CYCLE
     Route: 041
     Dates: start: 20240127, end: 20240127
  7. METHOTREXATE SODIUM [Suspect]
     Active Substance: METHOTREXATE SODIUM
     Dosage: 1 DF, 2ND CYCLE
     Route: 041
     Dates: start: 20240222, end: 20240222
  8. METHOTREXATE SODIUM [Suspect]
     Active Substance: METHOTREXATE SODIUM
     Dosage: 1 DF, 3RD CYCLE
     Route: 041
     Dates: start: 20240314, end: 20240314
  9. METHOTREXATE SODIUM [Suspect]
     Active Substance: METHOTREXATE SODIUM
     Dosage: 1 DF, 4TH CYCLE
     Route: 041
     Dates: start: 20240402, end: 20240402
  10. RITUXIMAB [Suspect]
     Active Substance: RITUXIMAB
     Indication: Central nervous system lymphoma
     Dosage: 702 MG, 1ST CYCLE
     Route: 041
     Dates: start: 20240126, end: 20240126
  11. RITUXIMAB [Suspect]
     Active Substance: RITUXIMAB
     Dosage: 1 DF, 2ND CYCLE
     Route: 041
     Dates: start: 20240221, end: 20240221
  12. RITUXIMAB [Suspect]
     Active Substance: RITUXIMAB
     Dosage: 1 DF, 3RD CYCLE
     Route: 041
     Dates: start: 20240313, end: 20240313
  13. RITUXIMAB [Suspect]
     Active Substance: RITUXIMAB
     Dosage: 691 MG, 4TH CYCLE
     Route: 041
     Dates: start: 20240402, end: 20240402
  14. TEPADINA [Suspect]
     Active Substance: THIOTEPA
     Indication: Central nervous system lymphoma
     Dosage: 56 MG, 1ST CYCLE
     Route: 041
     Dates: start: 20240130, end: 20240130
  15. TEPADINA [Suspect]
     Active Substance: THIOTEPA
     Dosage: 1 DF, 2ND CYCLE
     Route: 041
     Dates: start: 20240225, end: 20240225
  16. TEPADINA [Suspect]
     Active Substance: THIOTEPA
     Dosage: 1 DF, 3RD CYCLE
     Route: 041
     Dates: start: 20240317, end: 20240317
  17. TEPADINA [Suspect]
     Active Substance: THIOTEPA
     Dosage: 1 DF, 4TH CYCLE
     Route: 041
     Dates: start: 20240406, end: 20240406
  18. DEXAMETHASONE ACETATE [Suspect]
     Active Substance: DEXAMETHASONE ACETATE
     Dosage: 20 MG
     Dates: start: 20240120, end: 20240124
  19. LEUCOVORIN [Suspect]
     Active Substance: LEUCOVORIN\LEUCOVORIN CALCIUM
     Dosage: UNK
     Dates: start: 20240128
  20. LEUCOVORIN [Suspect]
     Active Substance: LEUCOVORIN\LEUCOVORIN CALCIUM
     Dosage: UNK
     Dates: start: 20240129
  21. LEUCOVORIN [Suspect]
     Active Substance: LEUCOVORIN\LEUCOVORIN CALCIUM
     Dosage: UNK
     Dates: start: 20240130
  22. LEUCOVORIN [Suspect]
     Active Substance: LEUCOVORIN\LEUCOVORIN CALCIUM
     Dosage: UNK
     Dates: start: 20240131
  23. LEUCOVORIN [Suspect]
     Active Substance: LEUCOVORIN\LEUCOVORIN CALCIUM
     Dosage: UNK
     Dates: start: 20240201
  24. LEUCOVORIN [Suspect]
     Active Substance: LEUCOVORIN\LEUCOVORIN CALCIUM
     Dosage: UNK
     Dates: start: 20240202
  25. ZIEXTENZO [Suspect]
     Active Substance: PEGFILGRASTIM-BMEZ
     Dosage: UNK
     Dates: start: 20240131
  26. SODIUM CHLORIDE [Concomitant]
     Active Substance: SODIUM CHLORIDE
     Dosage: UNK
     Dates: start: 20240126
  27. XYZAL [Concomitant]
     Active Substance: LEVOCETIRIZINE DIHYDROCHLORIDE
     Dosage: UNK
     Dates: start: 20240126
  28. ALLOPURINOL [Concomitant]
     Active Substance: ALLOPURINOL
     Dosage: UNK
     Dates: start: 20240126
  29. SOLU-MEDROL [Concomitant]
     Active Substance: METHYLPREDNISOLONE SODIUM SUCCINATE
     Dosage: UNK
     Dates: start: 20240126
  30. DEXAMETHASONE ACETATE [Concomitant]
     Active Substance: DEXAMETHASONE ACETATE
     Dosage: UNK
  31. PALONOSETRON [Concomitant]
     Active Substance: PALONOSETRON
     Dosage: UNK
  32. GLUCOSALIN [Concomitant]
     Dosage: UNK
  33. HIGH DENSITY POLYETHYLENE [Concomitant]
     Active Substance: HIGH DENSITY POLYETHYLENE
     Dosage: UNK
  34. SODIUM BICARBONATE [Concomitant]
     Active Substance: SODIUM BICARBONATE
     Dosage: UNK
  35. POLYPROPYLENE GLYCOL [Concomitant]
     Dosage: UNK
  36. DIFLUCAN [Concomitant]
     Active Substance: FLUCONAZOLE
     Dosage: 1X/WEEK
     Dates: start: 20240126
  37. VALACYCLOVIR [Concomitant]
     Active Substance: VALACYCLOVIR HYDROCHLORIDE
     Dosage: UNK
     Dates: start: 20240202
  38. FRAGMIN [Concomitant]
     Active Substance: DALTEPARIN SODIUM
     Dosage: 5000 IU
     Route: 058
  39. CANDESARTAN CILEXETIL [Concomitant]
     Active Substance: CANDESARTAN CILEXETIL
     Dosage: 8 MG; 0.5-0-0.5

REACTIONS (1)
  - Liver disorder [Recovering/Resolving]

NARRATIVE: CASE EVENT DATE: 20240129
